FAERS Safety Report 23113919 (Version 3)
Quarter: 2023Q4

REPORT INFORMATION
  Report Type: Spontaneous
  Country: US (occurrence: US)
  Receive Date: 20231027
  Receipt Date: 20231201
  Transmission Date: 20240109
  Serious: Yes (Hospitalization, Other)
  Sender: FDA-Public Use
  Company Number: US-SA-2023SA317966

PATIENT
  Age: 50 Year
  Sex: Male

DRUGS (7)
  1. HYDROCORTISONE [Suspect]
     Active Substance: HYDROCORTISONE
     Indication: Adrenal insufficiency
     Dosage: 100 MG STRESS-DOSE
     Route: 065
  2. HYDROCORTISONE [Suspect]
     Active Substance: HYDROCORTISONE
     Dosage: TAPERED DOWN TO 10 MG, QD
     Route: 065
  3. PREDNISONE [Suspect]
     Active Substance: PREDNISONE
     Indication: Product used for unknown indication
     Dosage: 20 MG QD
     Route: 065
  4. LEVOTHYROXINE [Concomitant]
     Active Substance: LEVOTHYROXINE
     Indication: Adrenal insufficiency
     Route: 065
  5. LIOTHYRONINE SODIUM [Concomitant]
     Active Substance: LIOTHYRONINE SODIUM
     Indication: Adrenal insufficiency
     Route: 065
  6. DESMOPRESSIN [Concomitant]
     Active Substance: DESMOPRESSIN
     Indication: Adrenal insufficiency
     Route: 065
  7. OXYGEN [Concomitant]
     Active Substance: OXYGEN
     Indication: Product used for unknown indication
     Dosage: HIGH FLOW OXYGEN
     Route: 065

REACTIONS (10)
  - Perforation [Recovered/Resolved]
  - Tracheal injury [Recovered/Resolved]
  - Musculoskeletal stiffness [Recovered/Resolved]
  - Incision site pain [Recovered/Resolved]
  - Subcutaneous emphysema [Unknown]
  - Cough [Unknown]
  - Swelling [Unknown]
  - Incision site swelling [Recovered/Resolved]
  - Mucosal ulceration [Unknown]
  - Crepitations [Unknown]
